FAERS Safety Report 19120221 (Version 1)
Quarter: 2021Q2

REPORT INFORMATION
  Report Type: Spontaneous
  Country: US (occurrence: US)
  Receive Date: 20210412
  Receipt Date: 20210412
  Transmission Date: 20210717
  Serious: No
  Sender: FDA-Public Use
  Company Number: US-SA-2021SA116453

PATIENT
  Age: 65 Year
  Sex: Male
  Weight: 74 kg

DRUGS (4)
  1. DUPIXENT [Suspect]
     Active Substance: DUPILUMAB
     Indication: DERMATITIS ATOPIC
     Dosage: 300 MG, QOW
     Route: 058
     Dates: end: 202012
  2. DUPIXENT [Suspect]
     Active Substance: DUPILUMAB
     Dosage: 300 MG, QOW
     Route: 058
     Dates: start: 20210402
  3. TIVICAY [Concomitant]
     Active Substance: DOLUTEGRAVIR SODIUM
  4. INTELENCE [Concomitant]
     Active Substance: ETRAVIRINE

REACTIONS (2)
  - Injection site swelling [Unknown]
  - Injection site pain [Unknown]

NARRATIVE: CASE EVENT DATE: 20210402
